FAERS Safety Report 7305050-3 (Version None)
Quarter: 2011Q1

REPORT INFORMATION
  Report Type: 
  Country: None (occurrence: None)
  Receive Date: 20110222
  Receipt Date: 20110203
  Transmission Date: 20110831
  Serious: Yes (Hospitalization, Other)
  Sender: FDA-Public Use
  Company Number: GB-SANOFI-AVENTIS-2011SA007412

PATIENT
  Age: 38 Year
  Sex: Male

DRUGS (3)
  1. PRIMAQUINE [Suspect]
     Route: 065
  2. CLINDAMYCIN [Concomitant]
     Route: 065
  3. COTRIM [Suspect]
     Route: 065

REACTIONS (2)
  - METHAEMOGLOBINAEMIA [None]
  - SEPTIC SHOCK [None]
